FAERS Safety Report 11761570 (Version 1)
Quarter: 2015Q4

REPORT INFORMATION
  Report Type: Spontaneous
  Country: US (occurrence: US)
  Receive Date: 20151120
  Receipt Date: 20151120
  Transmission Date: 20160304
  Serious: No
  Sender: FDA-Public Use
  Company Number: US-ELI_LILLY_AND_COMPANY-US201301001080

PATIENT
  Age: 57 Year
  Sex: Female

DRUGS (5)
  1. PREDNISONE. [Concomitant]
     Active Substance: PREDNISONE
     Dosage: UNK, QD
  2. SPIRONOLACTONE. [Concomitant]
     Active Substance: SPIRONOLACTONE
     Dosage: UNK, QD
  3. FORTEO [Suspect]
     Active Substance: TERIPARATIDE
     Indication: OSTEOPOROSIS
     Dosage: 20 UG, QD
     Dates: start: 20121128
  4. INSULIN [Concomitant]
     Active Substance: INSULIN NOS
     Dosage: 30 U, PRN
     Route: 058
  5. INSULIN [Concomitant]
     Active Substance: INSULIN NOS
     Dosage: 22 U, PRN
     Route: 058

REACTIONS (2)
  - Blood glucose increased [Recovered/Resolved]
  - Stress fracture [Unknown]

NARRATIVE: CASE EVENT DATE: 20121129
